FAERS Safety Report 24845278 (Version 1)
Quarter: 2025Q1

REPORT INFORMATION
  Report Type: Spontaneous
  Country: US (occurrence: US)
  Receive Date: 20250115
  Receipt Date: 20250115
  Transmission Date: 20250409
  Serious: No
  Sender: PFIZER
  Company Number: US-PFIZER INC-PV202500006078

PATIENT
  Age: 59 Year
  Sex: Female
  Weight: 54.43 kg

DRUGS (4)
  1. ZITHROMAX [Suspect]
     Active Substance: AZITHROMYCIN DIHYDRATE
     Dosage: UNK, DAILY
     Dates: start: 20221130
  2. RIFABUTIN [Suspect]
     Active Substance: RIFABUTIN
     Dosage: UNK, DAILY
     Dates: start: 20221130
  3. ETHAMBUTOL [Suspect]
     Active Substance: ETHAMBUTOL HYDROCHLORIDE
     Dosage: UNK, DAILY
     Dates: start: 20221130
  4. LAMICTAL [Concomitant]
     Active Substance: LAMOTRIGINE

REACTIONS (13)
  - Wheezing [Unknown]
  - Productive cough [Unknown]
  - Dyspnoea exertional [Unknown]
  - Chest pain [Unknown]
  - Chills [Unknown]
  - Night sweats [Unknown]
  - Weight decreased [Unknown]
  - Anxiety [Unknown]
  - Pulmonary mass [Unknown]
  - Taste disorder [Unknown]
  - Decreased appetite [Unknown]
  - Asthenia [Unknown]
  - Gait disturbance [Unknown]

NARRATIVE: CASE EVENT DATE: 20221130
